FAERS Safety Report 14499082 (Version 1)
Quarter: 2018Q1

REPORT INFORMATION
  Report Type: Spontaneous
  Country: BR (occurrence: BR)
  Receive Date: 20180207
  Receipt Date: 20180207
  Transmission Date: 20180509
  Serious: Yes (Hospitalization)
  Sender: FDA-Public Use
  Company Number: PHHY2018BR017104

PATIENT

DRUGS (1)
  1. METHOTREXATE. [Suspect]
     Active Substance: METHOTREXATE
     Indication: GESTATIONAL TROPHOBLASTIC TUMOUR
     Dosage: INFUSION
     Route: 065

REACTIONS (6)
  - Neutropenia [Unknown]
  - Urinary tract infection [Unknown]
  - Pyelonephritis [Unknown]
  - Toxicity to various agents [Unknown]
  - Peritonitis [Unknown]
  - Abdominal pain [Unknown]
